FAERS Safety Report 5939624-9 (Version None)
Quarter: 2008Q4

REPORT INFORMATION
  Report Type: 
  Country: None (occurrence: None)
  Receive Date: 20081030
  Receipt Date: 20081030
  Transmission Date: 20090506
  Serious: Yes (Hospitalization)
  Sender: FDA-Public Use
  Company Number: None

PATIENT
  Age: 70 Year
  Sex: Male

DRUGS (8)
  1. OMNICEF [Suspect]
     Dates: start: 20071110, end: 20071119
  2. AGGRENOXX [Concomitant]
  3. CRESTOR [Concomitant]
  4. ACETAMINOPHEN [Concomitant]
  5. GLIPIZIDE [Concomitant]
  6. METFORMIN HCL [Concomitant]
  7. LIPITOR [Concomitant]
  8. ALTACE [Concomitant]

REACTIONS (3)
  - AUTOIMMUNE HEPATITIS [None]
  - CHOLESTASIS [None]
  - LIVER INJURY [None]
